FAERS Safety Report 23488926 (Version 2)
Quarter: 2024Q1

REPORT INFORMATION
  Report Type: Spontaneous
  Country: US (occurrence: None)
  Receive Date: 20240206
  Receipt Date: 20240304
  Transmission Date: 20240409
  Serious: Yes (Hospitalization)
  Sender: FDA-Public Use
  Company Number: US-FARMAPROD-202401-0274

PATIENT
  Sex: Female

DRUGS (24)
  1. OXERVATE [Suspect]
     Active Substance: CENEGERMIN-BKBJ
     Indication: Neurotrophic keratopathy
     Route: 047
     Dates: start: 20240115
  2. MAXIDEX [Concomitant]
     Active Substance: DEXAMETHASONE
  3. FUROSEMIDE [Concomitant]
     Active Substance: FUROSEMIDE
  4. CEPHALEXIN [Concomitant]
     Active Substance: CEPHALEXIN
  5. SENNA LAXATIVE [Concomitant]
     Active Substance: SENNOSIDES
  6. VITAMINS [Concomitant]
     Active Substance: VITAMINS
  7. MELATONIN [Concomitant]
     Active Substance: MELATONIN
  8. REFRESH TEARS [Concomitant]
     Active Substance: CARBOXYMETHYLCELLULOSE SODIUM
  9. HUMALOG [Concomitant]
     Active Substance: INSULIN LISPRO
     Dosage: VIAL
  10. BENZONATATE [Concomitant]
     Active Substance: BENZONATATE
  11. BUSPIRONE HCL [Concomitant]
     Active Substance: BUSPIRONE HYDROCHLORIDE
  12. ERYTHROMYCIN [Concomitant]
     Active Substance: ERYTHROMYCIN
  13. ZIRGAN [Concomitant]
     Active Substance: GANCICLOVIR
  14. OFLOXACIN [Concomitant]
     Active Substance: OFLOXACIN
  15. MOXIFLOXACIN [Concomitant]
     Active Substance: MOXIFLOXACIN
  16. PREDNISOLONE-NEPAFENAC [Concomitant]
  17. CLOBETASOL PROPIONATE [Concomitant]
     Active Substance: CLOBETASOL PROPIONATE
  18. VITAMIN D2 [Concomitant]
     Active Substance: ERGOCALCIFEROL
  19. ATROPINE\DIPHENOXYLATE [Concomitant]
     Active Substance: ATROPINE\DIPHENOXYLATE
  20. MORPHINE SULFATE [Concomitant]
     Active Substance: MORPHINE SULFATE
  21. OZEMPIC [Concomitant]
     Active Substance: SEMAGLUTIDE
     Dosage: 1 / 0.75 (3) PEN INJECTOR.
  22. ASPIRIN [Concomitant]
     Active Substance: ASPIRIN
  23. TRESIBA [Concomitant]
     Active Substance: INSULIN DEGLUDEC
  24. PREDNISOLONE [Concomitant]
     Active Substance: PREDNISOLONE

REACTIONS (6)
  - Arterial stent insertion [Recovered/Resolved]
  - Peripheral swelling [Unknown]
  - Dysuria [Unknown]
  - Treatment noncompliance [Unknown]
  - Product administration error [Unknown]
  - Product dose omission issue [Unknown]
